FAERS Safety Report 11169737 (Version 1)
Quarter: 2015Q2

REPORT INFORMATION
  Report Type: Spontaneous
  Country: GB (occurrence: GB)
  Receive Date: 20150606
  Receipt Date: 20150606
  Transmission Date: 20150821
  Serious: Yes (Other)
  Sender: FDA-Public Use
  Company Number: GB-AUROBINDO-AUR-APL-2015-04805

PATIENT
  Age: 29 Year
  Sex: Female
  Weight: 59 kg

DRUGS (2)
  1. METRONIDAZOLE. [Suspect]
     Active Substance: METRONIDAZOLE
     Indication: GINGIVITIS
     Dosage: UNK
     Route: 065
     Dates: start: 20150424, end: 20150501
  2. AMOXICILLIN. [Suspect]
     Active Substance: AMOXICILLIN
     Indication: GINGIVITIS
     Dosage: UNK
     Route: 065
     Dates: start: 20150424, end: 20150501

REACTIONS (5)
  - Urinary tract infection [Unknown]
  - Depressed mood [Unknown]
  - Haemorrhage urinary tract [Unknown]
  - Diarrhoea [Unknown]
  - Candida infection [Unknown]
